FAERS Safety Report 10402618 (Version 1)
Quarter: 2014Q3

REPORT INFORMATION
  Report Type: Spontaneous
  Country: US (occurrence: None)
  Receive Date: 20140821
  Receipt Date: 20140821
  Transmission Date: 20150326
  Serious: No
  Sender: FDA-Public Use
  Company Number: None

PATIENT
  Age: 36 Year
  Sex: Female
  Weight: 70.31 kg

DRUGS (1)
  1. DOXYCYCLINE. [Suspect]
     Active Substance: DOXYCYCLINE
     Indication: ARTHROPOD BITE
     Dosage: DIXOCYCLINE TWICE DAILY TAKEN BY MOUTH
     Route: 048
     Dates: start: 20140810, end: 20140816

REACTIONS (3)
  - Haematochezia [None]
  - Abdominal pain [None]
  - Colitis [None]

NARRATIVE: CASE EVENT DATE: 20140817
